FAERS Safety Report 13420808 (Version 5)
Quarter: 2018Q3

REPORT INFORMATION
  Report Type: Spontaneous
  Country: US (occurrence: US)
  Receive Date: 20170409
  Receipt Date: 20180718
  Transmission Date: 20181010
  Serious: Yes (Other)
  Sender: FDA-Public Use
  Company Number: US-ASTRAZENECA-2017SE33974

PATIENT
  Age: 70 Year
  Sex: Female
  Weight: 56.7 kg

DRUGS (5)
  1. TOPROL XL [Suspect]
     Active Substance: METOPROLOL SUCCINATE
     Indication: CARDIAC DISORDER
     Route: 048
  2. LIPITOR [Concomitant]
     Active Substance: ATORVASTATIN CALCIUM
     Route: 048
  3. TOPROL XL [Suspect]
     Active Substance: METOPROLOL SUCCINATE
     Indication: BLOOD PRESSURE ABNORMAL
     Route: 048
  4. TUDORZA PRESSAIR [Suspect]
     Active Substance: ACLIDINIUM BROMIDE
     Indication: CHRONIC OBSTRUCTIVE PULMONARY DISEASE
     Dosage: 400 MCG, ONE PUFF TWICE DAILY
     Route: 055
     Dates: start: 2015
  5. TRANZENE [Concomitant]
     Active Substance: CLORAZEPATE DIPOTASSIUM
     Indication: NERVE INJURY
     Route: 048

REACTIONS (15)
  - Breast cancer female [Unknown]
  - Hypoacusis [Not Recovered/Not Resolved]
  - Sleep disorder [Unknown]
  - Cardiac disorder [Unknown]
  - Blood cholesterol abnormal [Unknown]
  - Abdominal discomfort [Unknown]
  - Arthritis [Unknown]
  - Circumstance or information capable of leading to medication error [Unknown]
  - Off label use [Unknown]
  - Dyspnoea [Unknown]
  - Macular degeneration [Not Recovered/Not Resolved]
  - Chronic obstructive pulmonary disease [Unknown]
  - Gastrooesophageal reflux disease [Unknown]
  - Device malfunction [Unknown]
  - Intentional product misuse [Not Recovered/Not Resolved]

NARRATIVE: CASE EVENT DATE: 2000
